FAERS Safety Report 7314629-4 (Version None)
Quarter: 2011Q1

REPORT INFORMATION
  Report Type: 
  Country: None (occurrence: None)
  Receive Date: 20110225
  Receipt Date: 20101020
  Transmission Date: 20110831
  Serious: No
  Sender: FDA-Public Use
  Company Number: US-MYLANLABS-2010S1019423

PATIENT
  Age: 16 Year
  Sex: Male

DRUGS (3)
  1. AMNESTEEM [Suspect]
     Indication: ACNE
     Route: 048
     Dates: start: 20100101, end: 20100101
  2. RITALIN [Concomitant]
  3. CONCERTA [Concomitant]

REACTIONS (2)
  - DRY SKIN [None]
  - EPISTAXIS [None]
